FAERS Safety Report 8099345-6 (Version None)
Quarter: 2012Q1

REPORT INFORMATION
  Report Type: 
  Country: None (occurrence: None)
  Receive Date: 20120131
  Receipt Date: 20120124
  Transmission Date: 20120608
  Serious: Yes (Hospitalization)
  Sender: FDA-Public Use
  Company Number: AU-B.I. PHARMACEUTICALS,INC./RIDGEFIELD-2012-AU-00136AU

PATIENT
  Age: 87 Year
  Sex: Male

DRUGS (9)
  1. LASIX [Concomitant]
  2. PRADAXA [Suspect]
     Indication: CEREBROVASCULAR ACCIDENT PROPHYLAXIS
     Dates: start: 20110624, end: 20110830
  3. PRADAXA [Suspect]
     Indication: ATRIAL FIBRILLATION
  4. CARVEDILOL [Concomitant]
  5. RAMIPRIL [Concomitant]
  6. METOPROLOL TARTRATE [Concomitant]
  7. SIMVASTATIN [Concomitant]
  8. NEXIUM [Concomitant]
  9. PANADOL OSTEO [Concomitant]

REACTIONS (2)
  - RENAL IMPAIRMENT [None]
  - CONTUSION [None]
